FAERS Safety Report 7048011-4 (Version None)
Quarter: 2010Q4

REPORT INFORMATION
  Report Type: 
  Country: None (occurrence: None)
  Receive Date: 20101015
  Receipt Date: 20101007
  Transmission Date: 20110411
  Serious: Yes (Hospitalization)
  Sender: FDA-Public Use
  Company Number: A0886015A

PATIENT
  Age: 43 Year
  Sex: Female

DRUGS (26)
  1. FLOLAN [Suspect]
  2. BLINDED TRIAL MEDICATION [Suspect]
     Indication: PULMONARY ARTERIAL HYPERTENSION
     Route: 048
     Dates: start: 20100713
  3. LEVAQUIN [Suspect]
  4. DOXYCYCLINE [Suspect]
  5. TYLENOL [Concomitant]
  6. AMILORIDE HYDROCHLORIDE [Concomitant]
  7. RHINOCORT [Concomitant]
  8. CALCIUM + VITAMIN D [Concomitant]
  9. DIGOXIN [Concomitant]
  10. DOCUSATE SODIUM [Concomitant]
  11. CYMBALTA [Concomitant]
  12. LUNESTA [Concomitant]
  13. ALLEGRA [Concomitant]
  14. HYDROXYZINE [Concomitant]
  15. LACTOBACILLUS ACIDOPHILUS [Concomitant]
  16. LANSOPRAZOLE [Concomitant]
  17. SINGULAIR [Concomitant]
  18. MULTI-VITAMIN [Concomitant]
  19. DEMADEX [Concomitant]
  20. TRAMADOL HCL [Concomitant]
  21. COUMADIN [Concomitant]
  22. CARAFATE [Concomitant]
  23. SPIRONOLACTONE [Concomitant]
  24. MIRAPEX [Concomitant]
  25. POTASSIUM CHLORIDE [Concomitant]
  26. CHLORHEXIDINE GLUCONATE [Concomitant]

REACTIONS (5)
  - CANDIDIASIS [None]
  - DYSPHAGIA [None]
  - GLOSSODYNIA [None]
  - OROPHARYNGEAL PAIN [None]
  - PYREXIA [None]
